FAERS Safety Report 22224530 (Version 1)
Quarter: 2023Q2

REPORT INFORMATION
  Report Type: Spontaneous
  Country: US (occurrence: None)
  Receive Date: 20230417
  Receipt Date: 20230417
  Transmission Date: 20230721
  Serious: Yes (Other)
  Sender: FDA-Public Use
  Company Number: None

PATIENT
  Age: 65 Year
  Sex: Female
  Weight: 67.5 kg

DRUGS (3)
  1. RITUXAN [Suspect]
     Active Substance: RITUXIMAB
     Indication: Rheumatoid arthritis
     Dosage: 2X2 WEEKS APART INTRAVENOUS
     Route: 042
     Dates: start: 20230320, end: 20230403
  2. voltarin [Concomitant]
  3. ibuprofin [Concomitant]

REACTIONS (3)
  - Pyrexia [None]
  - Pain [None]
  - Inflammatory pain [None]

NARRATIVE: CASE EVENT DATE: 20230330
